FAERS Safety Report 19986661 (Version 1)
Quarter: 2021Q4

REPORT INFORMATION
  Report Type: Spontaneous
  Country: US (occurrence: US)
  Receive Date: 20211022
  Receipt Date: 20211022
  Transmission Date: 20220303
  Serious: No
  Sender: FDA-Public Use
  Company Number: US-ENDO PHARMACEUTICALS INC-2021-010859

PATIENT
  Sex: Female

DRUGS (3)
  1. QWO [Suspect]
     Active Substance: COLLAGENASE CLOSTRIDIUM HISTOLYTICUM-AAES
     Indication: Peau d^orange
     Dosage: 1.84 MG, UNKNOWN; FIRST TREATMENT
     Route: 065
     Dates: start: 20210414
  2. QWO [Suspect]
     Active Substance: COLLAGENASE CLOSTRIDIUM HISTOLYTICUM-AAES
     Dosage: 1.84 MG, UNKNOWN; SECOND TREATMENT
     Route: 065
     Dates: start: 20210506
  3. QWO [Suspect]
     Active Substance: COLLAGENASE CLOSTRIDIUM HISTOLYTICUM-AAES
     Dosage: 1.84 MG, UNKNOWN; THIRD TREATMENT
     Route: 065
     Dates: start: 20210601

REACTIONS (2)
  - Skin hyperpigmentation [Unknown]
  - Drug ineffective [Unknown]
